FAERS Safety Report 9865470 (Version 2)
Quarter: 2014Q1

REPORT INFORMATION
  Report Type: Spontaneous
  Country: US (occurrence: US)
  Receive Date: 20140203
  Receipt Date: 20140203
  Transmission Date: 20141002
  Serious: No
  Sender: FDA-Public Use
  Company Number: US-ALLERGAN-1309107US

PATIENT
  Age: 61 Year
  Sex: Female

DRUGS (12)
  1. RESTASIS [Suspect]
     Indication: DRY EYE
     Dosage: 2 GTT, BID
     Route: 047
     Dates: start: 20130610
  2. RESTASIS [Suspect]
     Dosage: UNK
  3. REFRESH PLUS [Concomitant]
     Indication: DRY EYE
  4. XANAX [Concomitant]
     Indication: PANIC DISORDER
     Dosage: 0.25 MG, TID
     Route: 048
  5. ZIOPTIN [Concomitant]
     Indication: GLAUCOMA
     Dosage: UNK
     Route: 047
     Dates: start: 20130618
  6. OMEPRAZOLE [Concomitant]
     Indication: GASTROOESOPHAGEAL REFLUX DISEASE
     Dosage: 10 MG, QD
     Route: 048
  7. CALTRATE CHEWABLES [Concomitant]
     Indication: PRODUCT USED FOR UNKNOWN INDICATION
  8. VITAMINS NOS [Concomitant]
     Indication: PRODUCT USED FOR UNKNOWN INDICATION
  9. PROBIOTIC                          /06395501/ [Concomitant]
     Indication: PRODUCT USED FOR UNKNOWN INDICATION
  10. PREMARIN [Concomitant]
     Indication: PRODUCT USED FOR UNKNOWN INDICATION
     Dosage: UNK UNK, BI-WEEKLY
     Route: 067
  11. SIMVASTATIN [Concomitant]
     Indication: BLOOD CHOLESTEROL
     Dosage: 20 MG, QD
     Route: 048
  12. LOTREL [Concomitant]
     Indication: HYPERTENSION

REACTIONS (6)
  - Dysgeusia [Recovered/Resolved]
  - Eye irritation [Recovered/Resolved]
  - Scleral hyperaemia [Recovering/Resolving]
  - Eyelid oedema [Recovering/Resolving]
  - Dry eye [Recovering/Resolving]
  - Eye pain [Recovered/Resolved]
